FAERS Safety Report 7226956-X (Version None)
Quarter: 2011Q1

REPORT INFORMATION
  Report Type: 
  Country: None (occurrence: None)
  Receive Date: 20110105
  Receipt Date: 20101222
  Transmission Date: 20110831
  Serious: Yes (Life-Threatening, Hospitalization)
  Sender: FDA-Public Use
  Company Number: 1000017961

PATIENT
  Age: 81 Year
  Sex: Male

DRUGS (6)
  1. PHENPROCOUMON (PHENPROCOUMON) (TABLETS) [Suspect]
     Dosage: ORAL
     Route: 048
     Dates: start: 20000101, end: 20101119
  2. SORTIS (ATORVASTATIN) (ATORVASTATIN) [Concomitant]
  3. COVERSUM COMBI (BI PREDONIUM) (BI PREDONIUM) [Concomitant]
  4. ESCITALOPRAM [Suspect]
     Dosage: 10 MG (10 MG, 1 IN 1 D), ORAL
     Route: 048
     Dates: start: 20080918
  5. MEPHANOL-100 (ALLOPURINOL) (ALLOPURINOL) [Concomitant]
  6. PRADIF (TAMSULOSIN HYDROCHLORIDE) (TAMSULOSIN HYDROCHLORIDE) [Concomitant]

REACTIONS (3)
  - INTERNATIONAL NORMALISED RATIO INCREASED [None]
  - INTRAVENTRICULAR HAEMORRHAGE [None]
  - DRUG INTERACTION [None]
